FAERS Safety Report 25396617 (Version 1)
Quarter: 2025Q2

REPORT INFORMATION
  Report Type: Spontaneous
  Country: US (occurrence: None)
  Receive Date: 20250604
  Receipt Date: 20250604
  Transmission Date: 20250716
  Serious: Yes (Other)
  Sender: FDA-CTU
  Company Number: None

PATIENT
  Age: 28 Year
  Sex: Female

DRUGS (1)
  1. MONISTAT 7 [Suspect]
     Active Substance: MICONAZOLE NITRATE

REACTIONS (4)
  - Pain [None]
  - Burning sensation [None]
  - Pruritus [None]
  - Exposure during pregnancy [None]

NARRATIVE: CASE EVENT DATE: 20250601
